FAERS Safety Report 7214863-8 (Version None)
Quarter: 2011Q1

REPORT INFORMATION
  Report Type: 
  Country: None (occurrence: None)
  Receive Date: 20110107
  Receipt Date: 20100611
  Transmission Date: 20110831
  Serious: No
  Sender: FDA-Public Use
  Company Number: A0854511A

PATIENT
  Age: 62 Year
  Sex: Female

DRUGS (7)
  1. FOLIC ACID [Concomitant]
  2. RED YEAST RICE [Concomitant]
  3. LOVAZA [Suspect]
     Indication: LOW DENSITY LIPOPROTEIN INCREASED
     Route: 048
     Dates: start: 20100101
  4. MULTIPLE VITAMIN [Concomitant]
  5. CALCIUM [Concomitant]
  6. MAGNESIUM [Concomitant]
  7. BIOTENE [Concomitant]

REACTIONS (1)
  - LOW DENSITY LIPOPROTEIN INCREASED [None]
